FAERS Safety Report 20539458 (Version 3)
Quarter: 2022Q2

REPORT INFORMATION
  Report Type: Report from Study
  Country: CA (occurrence: CA)
  Receive Date: 20220302
  Receipt Date: 20220419
  Transmission Date: 20220721
  Serious: Yes (Hospitalization, Other)
  Sender: FDA-Public Use
  Company Number: CA-JNJFOC-20210744026

PATIENT
  Age: 60 Year
  Sex: Female

DRUGS (3)
  1. STELARA [Suspect]
     Active Substance: USTEKINUMAB
     Indication: Crohn^s disease
     Dosage: LAST INJECTION WAS ON 06-JUL-2021.?LAST INJECTION WAS ON 13-OCT-2021.
     Route: 058
     Dates: start: 20200921
  2. STELARA [Suspect]
     Active Substance: USTEKINUMAB
  3. ESOMEPRAZOLE [Concomitant]
     Active Substance: ESOMEPRAZOLE
     Indication: Gastric disorder
     Route: 065

REACTIONS (4)
  - Intestinal obstruction [Unknown]
  - Gastrointestinal scarring [Unknown]
  - Postoperative wound infection [Recovered/Resolved]
  - Anxiety [Unknown]

NARRATIVE: CASE EVENT DATE: 20210426
